FAERS Safety Report 8180927-8 (Version None)
Quarter: 2012Q1

REPORT INFORMATION
  Report Type: 
  Country: None (occurrence: None)
  Receive Date: 20120302
  Receipt Date: 20120222
  Transmission Date: 20120608
  Serious: Yes (Other)
  Sender: FDA-Public Use
  Company Number: JP-CELGENEUS-087-21660-12023018

PATIENT
  Sex: Female
  Weight: 50 kg

DRUGS (8)
  1. ABRAXANE [Suspect]
     Dosage: 125 MILLIGRAM
     Route: 065
     Dates: start: 20110607
  2. AMLODIPINE [Concomitant]
     Indication: HYPERTENSION
     Route: 048
     Dates: start: 20110314, end: 20110601
  3. AMLODIPINE [Concomitant]
     Route: 048
     Dates: start: 20111122
  4. ABRAXANE [Suspect]
     Indication: BREAST CANCER METASTATIC
     Dosage: 215 MILLIGRAM
     Route: 065
     Dates: start: 20110314
  5. ABRAXANE [Suspect]
     Dosage: 100 MILLIGRAM
     Route: 065
     Dates: start: 20110705
  6. ALINAMIN EX PLUS [Concomitant]
     Indication: VITAMIN SUPPLEMENTATION
     Route: 065
     Dates: start: 19700101
  7. AVAPRO [Concomitant]
     Indication: HYPERTENSION
     Route: 048
     Dates: start: 20110314, end: 20110601
  8. AVAPRO [Concomitant]
     Dates: start: 20111122

REACTIONS (3)
  - CATARACT [None]
  - RETINAL HAEMORRHAGE [None]
  - CYSTOID MACULAR OEDEMA [None]
